FAERS Safety Report 9666060 (Version 1)
Quarter: 2013Q4

REPORT INFORMATION
  Report Type: Spontaneous
  Country: US (occurrence: US)
  Receive Date: 20131104
  Receipt Date: 20131104
  Transmission Date: 20140711
  Serious: Yes (Other)
  Sender: FDA-Public Use
  Company Number: US-PFIZER INC-2013312822

PATIENT
  Age: 26 Year
  Sex: Male

DRUGS (3)
  1. MORPHINE SULFATE [Suspect]
     Dosage: UNK
     Route: 065
     Dates: start: 2013, end: 2013
  2. VICODIN [Suspect]
     Dosage: UNK
     Route: 065
     Dates: start: 2013, end: 2013
  3. PERCOCET [Suspect]
     Dosage: UNK
     Route: 065
     Dates: start: 2013, end: 2013

REACTIONS (1)
  - Drug abuse [Unknown]
